FAERS Safety Report 9171726 (Version 1)
Quarter: 2013Q1

REPORT INFORMATION
  Report Type: Spontaneous
  Country: IT (occurrence: IT)
  Receive Date: 20130319
  Receipt Date: 20130319
  Transmission Date: 20140127
  Serious: Yes (Hospitalization, Other)
  Sender: FDA-Public Use
  Company Number: IT-ASTRAZENECA-2013SE12733

PATIENT
  Age: 25942 Day
  Sex: Male

DRUGS (12)
  1. PROVISACOR [Suspect]
     Route: 048
  2. GLIVEC [Suspect]
     Route: 065
  3. CARDIOCOR [Concomitant]
  4. LASIX [Concomitant]
  5. MONOKET [Concomitant]
  6. CARDIOASPIRIN [Concomitant]
  7. PLAVIX [Concomitant]
  8. OMEPRAZOLE [Concomitant]
  9. TERAPROST [Concomitant]
  10. HUMALOG [Concomitant]
     Dosage: 34 IU, THREE TIMES A DAY
  11. LANTUS [Concomitant]
     Dosage: AT NIGHT 22 IU
  12. ZYLORIC [Concomitant]

REACTIONS (3)
  - Rhabdomyolysis [Recovered/Resolved]
  - Atrial fibrillation [Unknown]
  - Cerebral ischaemia [Unknown]
